FAERS Safety Report 25506224 (Version 3)
Quarter: 2025Q4

REPORT INFORMATION
  Report Type: Spontaneous
  Country: US (occurrence: US)
  Receive Date: 20250702
  Receipt Date: 20251012
  Transmission Date: 20260118
  Serious: No
  Sender: SANOFI AVENTIS
  Company Number: US-SA-2025SA186227

PATIENT
  Age: 62 Year
  Sex: Male

DRUGS (10)
  1. ALPROLIX [Suspect]
     Active Substance: EFTRENONACOG ALFA
     Indication: Haemorrhage
     Dosage: 6000 U
     Route: 042
  2. ALPROLIX [Suspect]
     Active Substance: EFTRENONACOG ALFA
     Indication: Haemorrhage
     Dosage: 6000 U
     Route: 042
  3. ALPROLIX [Suspect]
     Active Substance: EFTRENONACOG ALFA
     Dosage: 5200 UNITS (+/- 10%) (OR APPROXIMATELY 5000 UNITS) ONCE A WEEK ON FRIDAYS, QW
     Route: 042
  4. ALPROLIX [Suspect]
     Active Substance: EFTRENONACOG ALFA
     Dosage: 5200 UNITS (+/- 10%) (OR APPROXIMATELY 5000 UNITS) ONCE A WEEK ON FRIDAYS, QW
     Route: 042
  5. ALPROLIX [Suspect]
     Active Substance: EFTRENONACOG ALFA
     Dosage: 5200 U (+/-10%) EVERY 48 HOURS AS DIRECTED BY PHYSICIAN FOR BLEEDS OR TRAUMA, PRN
     Route: 042
  6. ALPROLIX [Suspect]
     Active Substance: EFTRENONACOG ALFA
     Dosage: 5200 U (+/-10%) EVERY 48 HOURS AS DIRECTED BY PHYSICIAN FOR BLEEDS OR TRAUMA, PRN
     Route: 042
  7. ALPROLIX [Suspect]
     Active Substance: EFTRENONACOG ALFA
     Dosage: 6000 U (+/-10% )
     Route: 042
  8. ALPROLIX [Suspect]
     Active Substance: EFTRENONACOG ALFA
     Dosage: 6000 U (+/-10% )
     Route: 042
  9. ALPROLIX [Suspect]
     Active Substance: EFTRENONACOG ALFA
     Dosage: 7000 U
     Route: 042
  10. ALPROLIX [Suspect]
     Active Substance: EFTRENONACOG ALFA
     Dosage: 7000 U
     Route: 042

REACTIONS (4)
  - Contusion [Unknown]
  - Condition aggravated [Unknown]
  - Haemorrhage [Unknown]
  - Traumatic haemorrhage [Unknown]

NARRATIVE: CASE EVENT DATE: 20250601
